FAERS Safety Report 17456179 (Version 1)
Quarter: 2020Q1

REPORT INFORMATION
  Report Type: Spontaneous
  Country: CN (occurrence: CN)
  Receive Date: 20200225
  Receipt Date: 20200225
  Transmission Date: 20200409
  Serious: Yes (Hospitalization)
  Sender: FDA-Public Use
  Company Number: CN-BAXTER-2020BAX004046

PATIENT
  Age: 33 Year
  Sex: Female
  Weight: 63 kg

DRUGS (4)
  1. PIRARUBICIN HYDROCHLORIDE [Suspect]
     Active Substance: PIRARUBICIN HYDROCHLORIDE
     Indication: BREAST CANCER FEMALE
     Dosage: D1, 5% GLUCOSE INJECTION 100ML + PIRARUBICIN
     Route: 041
     Dates: start: 20200128, end: 20200128
  2. ENDOXAN [Suspect]
     Active Substance: CYCLOPHOSPHAMIDE
     Indication: BREAST CANCER FEMALE
     Dosage: D1, 0.9% SODIUM CHLORIDE + CYCLOPHOSPHAMIDE
     Route: 041
     Dates: start: 20200128, end: 20200128
  3. 5% GLUCOSE  INJECTION [Suspect]
     Active Substance: DEXTROSE
     Indication: MEDICATION DILUTION
     Dosage: D1, 5% GLUCOSE + PIRARUBICIN
     Route: 041
     Dates: start: 20200128, end: 20200128
  4. 0.9% SODIUM CHLORIDE INJECTION [Suspect]
     Active Substance: SODIUM CHLORIDE
     Indication: MEDICATION DILUTION
     Dosage: D1, 0.9% SODIUM CHLORIDE + ENDOXAN
     Route: 041
     Dates: start: 20200128, end: 20200128

REACTIONS (1)
  - Hepatic function abnormal [Recovering/Resolving]

NARRATIVE: CASE EVENT DATE: 20200210
